FAERS Safety Report 9996414 (Version 1)
Quarter: 2014Q1

REPORT INFORMATION
  Report Type: Spontaneous
  Country: SG (occurrence: SG)
  Receive Date: 20140311
  Receipt Date: 20140311
  Transmission Date: 20141002
  Serious: Yes (Other)
  Sender: FDA-Public Use
  Company Number: SG-GLAXOSMITHKLINE-B0975199A

PATIENT
  Age: 35 Year
  Sex: Male

DRUGS (1)
  1. WELLBUTRIN [Suspect]
     Indication: DEPRESSION
     Dosage: 150MG TWICE PER DAY
     Route: 048
     Dates: start: 201311, end: 201401

REACTIONS (2)
  - Ileus paralytic [Recovered/Resolved]
  - Constipation [Recovered/Resolved]
